FAERS Safety Report 21063923 (Version 1)
Quarter: 2022Q3

REPORT INFORMATION
  Report Type: Spontaneous
  Country: US (occurrence: None)
  Receive Date: 20220710
  Receipt Date: 20220710
  Transmission Date: 20221027
  Serious: No
  Sender: FDA-Public Use
  Company Number: None

PATIENT
  Age: 60 Year
  Sex: Female
  Weight: 56.25 kg

DRUGS (6)
  1. PAXLOVID [Suspect]
     Active Substance: NIRMATRELVIR\RITONAVIR
     Indication: COVID-19
     Dosage: OTHER QUANTITY : 2 TABLET(S);?FREQUENCY : TWICE A DAY;?
     Route: 048
     Dates: start: 20220610, end: 20220615
  2. RITONAVIR [Suspect]
     Active Substance: RITONAVIR
     Indication: COVID-19
     Dosage: OTHER QUANTITY : 1 TABLET(S);?FREQUENCY : TWICE A DAY;?
     Route: 048
     Dates: start: 20220610, end: 20220615
  3. carvedilol 15.625 mg 2 times a day [Concomitant]
  4. CALCIUM\VITAMIN D [Concomitant]
     Active Substance: CALCIUM\VITAMIN D
  5. VITAMINS [Concomitant]
     Active Substance: VITAMINS
  6. PROBIOTICS NOS [Concomitant]
     Active Substance: PROBIOTICS NOS

REACTIONS (6)
  - COVID-19 [None]
  - COVID-19 [None]
  - Tachycardia [None]
  - Oxygen saturation decreased [None]
  - Dysphonia [None]
  - Dizziness [None]

NARRATIVE: CASE EVENT DATE: 20220610
